FAERS Safety Report 7310386-6 (Version None)
Quarter: 2011Q1

REPORT INFORMATION
  Report Type: 
  Country: None (occurrence: None)
  Receive Date: 20110224
  Receipt Date: 20100629
  Transmission Date: 20110831
  Serious: No
  Sender: FDA-Public Use
  Company Number: US-BRISTOL-MYERS SQUIBB COMPANY-15171697

PATIENT
  Age: 61 Year
  Sex: Female

DRUGS (3)
  1. LANTUS [Suspect]
     Indication: TYPE 2 DIABETES MELLITUS
     Dosage: 1 DF=12 UNITS
     Route: 058
     Dates: start: 20100604
  2. METFORMIN HCL [Suspect]
  3. DIABETA [Suspect]

REACTIONS (1)
  - BLOOD GLUCOSE INCREASED [None]
